FAERS Safety Report 9272177 (Version 2)
Quarter: 2013Q4

REPORT INFORMATION
  Report Type: Spontaneous
  Country: US (occurrence: US)
  Receive Date: 20130506
  Receipt Date: 20131118
  Transmission Date: 20140711
  Serious: Yes (Death, Other)
  Sender: FDA-Public Use
  Company Number: CHPA2013US007614

PATIENT
  Age: 99 Year
  Sex: Female

DRUGS (2)
  1. MAALOX ADV MAXIMUM STRENGTH ANTACID/ANTIGAS [Suspect]
     Indication: DYSPEPSIA
     Dosage: UNK, UNK
     Route: 048
     Dates: start: 2010, end: 201203
  2. RITALIN [Concomitant]

REACTIONS (3)
  - Multiple fractures [Fatal]
  - Coma [Unknown]
  - Fall [Unknown]
